FAERS Safety Report 16018574 (Version 1)
Quarter: 2019Q1

REPORT INFORMATION
  Report Type: Spontaneous
  Country: GB (occurrence: GB)
  Receive Date: 20190228
  Receipt Date: 20190228
  Transmission Date: 20190418
  Serious: Yes (Hospitalization)
  Sender: FDA-Public Use
  Company Number: GB-TEVA-2019-GB-1016499

PATIENT
  Age: 42 Year
  Sex: Female

DRUGS (12)
  1. PREGABALIN. [Concomitant]
     Active Substance: PREGABALIN
  2. LEVOMEPROMAZINE [Concomitant]
     Active Substance: LEVOMEPROMAZINE
  3. CISPLATIN. [Concomitant]
     Active Substance: CISPLATIN
  4. ZOPICLONE [Concomitant]
     Active Substance: ZOPICLONE
  5. CARVEDILOL. [Concomitant]
     Active Substance: CARVEDILOL
  6. FENTANYL CITRATE. [Suspect]
     Active Substance: FENTANYL CITRATE
     Indication: ANALGESIC THERAPY
     Route: 061
     Dates: start: 20190114, end: 20190118
  7. CALCICHEW [Concomitant]
     Active Substance: CALCIUM CARBONATE
  8. METOCLOPRAMIDE. [Concomitant]
     Active Substance: METOCLOPRAMIDE
  9. LORAZEPAM. [Concomitant]
     Active Substance: LORAZEPAM
  10. MORPHINE [Concomitant]
     Active Substance: MORPHINE
  11. DEXAMETHASONE. [Suspect]
     Active Substance: DEXAMETHASONE
     Indication: STEROID THERAPY
     Route: 048
     Dates: start: 20190115
  12. HYOSCINE BUTYLBROMIDE [Concomitant]
     Active Substance: BUTYLSCOPOLAMINE

REACTIONS (2)
  - Somnolence [Recovering/Resolving]
  - Psychotic disorder [Recovering/Resolving]

NARRATIVE: CASE EVENT DATE: 20190114
